FAERS Safety Report 24409807 (Version 1)
Quarter: 2024Q4

REPORT INFORMATION
  Report Type: Report from Study
  Country: CA (occurrence: CA)
  Receive Date: 20241008
  Receipt Date: 20241008
  Transmission Date: 20250114
  Serious: Yes (Hospitalization, Other)
  Sender: PFIZER
  Company Number: CA-PFIZER INC-202400266914

PATIENT
  Sex: Male

DRUGS (11)
  1. LEVOFLOXACIN [Suspect]
     Active Substance: LEVOFLOXACIN
     Indication: Testicular swelling
     Dosage: 500 MG, 1X/DAY
  2. LEVOFLOXACIN [Suspect]
     Active Substance: LEVOFLOXACIN
     Indication: Orchitis
     Dosage: UNK
  3. ENTYVIO [Suspect]
     Active Substance: VEDOLIZUMAB
     Indication: Crohn^s disease
     Dosage: 300 MG
     Route: 042
  4. ENTYVIO [Suspect]
     Active Substance: VEDOLIZUMAB
     Dosage: 300 MG, MONTHLY
     Route: 042
  5. FOLATE SODIUM [Suspect]
     Active Substance: FOLATE SODIUM
     Dosage: UNK
  6. PENTASA [Suspect]
     Active Substance: MESALAMINE
     Dosage: UNK
  7. PREDNISONE [Suspect]
     Active Substance: PREDNISONE
     Dosage: 35 MG, 1X/DAY
  8. BUTYLSCOPOLAMINE BROMIDE [Concomitant]
     Active Substance: BUTYLSCOPOLAMINE BROMIDE
     Dosage: 10 MG
  9. IRON [Concomitant]
     Active Substance: IRON
     Dosage: 500 MG, 1X/DAY
  10. METHOTREXATE [Concomitant]
     Active Substance: METHOTREXATE
     Dosage: 15 MG, WEEKLY
  11. UROFOLLITROPIN [Concomitant]
     Active Substance: UROFOLLITROPIN
     Dosage: 1 MG, WEEKLY

REACTIONS (14)
  - Abdominal discomfort [Recovering/Resolving]
  - Anaemia [Recovering/Resolving]
  - Cholangitis sclerosing [Recovering/Resolving]
  - Diarrhoea [Recovering/Resolving]
  - Faeces hard [Recovering/Resolving]
  - Gastrointestinal inflammation [Recovering/Resolving]
  - Haematochezia [Recovering/Resolving]
  - Interleukin level increased [Recovering/Resolving]
  - Lactose intolerance [Recovering/Resolving]
  - Pain [Recovering/Resolving]
  - Pyrexia [Recovering/Resolving]
  - Treatment failure [Recovering/Resolving]
  - Anal stenosis [Recovering/Resolving]
  - Orchitis [Recovering/Resolving]
